FAERS Safety Report 19406795 (Version 2)
Quarter: 2021Q3

REPORT INFORMATION
  Report Type: Report from Study
  Country: US (occurrence: US)
  Receive Date: 20210612
  Receipt Date: 20210708
  Transmission Date: 20211014
  Serious: Yes (Death, Life-Threatening)
  Sender: FDA-Public Use
  Company Number: US-AMGEN-USACT2021090262

PATIENT
  Age: 55 Year
  Sex: Female
  Weight: 57.23 kg

DRUGS (15)
  1. AMG 510 [Suspect]
     Active Substance: AMG-510
     Indication: K-RAS GENE MUTATION
  2. AFATINIB DIMALEATE [Suspect]
     Active Substance: AFATINIB DIMALEATE
     Indication: NON-SMALL CELL LUNG CANCER STAGE IV
     Dosage: 30 MILLIGRAM
     Route: 048
     Dates: start: 20210330, end: 20210511
  3. NYSTATIN. [Concomitant]
     Active Substance: NYSTATIN
     Dosage: 4 MILLILITER
     Route: 048
     Dates: start: 20210329
  4. ZOFRAN [Concomitant]
     Active Substance: ONDANSETRON HYDROCHLORIDE
     Dosage: 4 MILLIGRAM
     Route: 048
     Dates: start: 20210330
  5. IBUPROFEN. [Concomitant]
     Active Substance: IBUPROFEN
     Dosage: 800 MILLIGRAM
     Route: 048
     Dates: start: 2020
  6. COLACE [Concomitant]
     Active Substance: DOCUSATE SODIUM
     Dosage: 2 UNK
     Route: 048
     Dates: start: 2020
  7. AFATINIB DIMALEATE [Suspect]
     Active Substance: AFATINIB DIMALEATE
     Indication: K-RAS GENE MUTATION
  8. OXYGEN. [Concomitant]
     Active Substance: OXYGEN
     Dosage: 6 UNK
     Route: 050
     Dates: start: 20210330
  9. VITAMIN B COMPLEX [Concomitant]
     Active Substance: CYANOCOBALAMIN\DEXPANTHENOL\NIACINAMIDE\PYRIDOXINE HYDROCHLORIDE\RIBOFLAVIN 5^-PHOSPHATE SODIUM\THIAMINE HYDROCHLORIDE\VITAMIN B COMPLEX
     Dosage: 1 UNK
     Route: 048
     Dates: start: 2014
  10. CIPROFLOXACIN. [Concomitant]
     Active Substance: CIPROFLOXACIN
     Dosage: 500 MILLIGRAM
     Route: 048
     Dates: start: 20210331
  11. AMG 510 [Suspect]
     Active Substance: AMG-510
     Indication: NON-SMALL CELL LUNG CANCER STAGE IV
     Dosage: 960 MILLIGRAM
     Route: 048
     Dates: start: 20210330, end: 20210601
  12. BIOTIN [Concomitant]
     Active Substance: BIOTIN
     Dosage: 1 UNK
     Route: 048
     Dates: start: 2014
  13. OXYCODONE [Concomitant]
     Active Substance: OXYCODONE
     Dosage: 5 MILLIGRAM
     Route: 048
     Dates: start: 20210331
  14. VITAMIN D [COLECALCIFEROL] [Concomitant]
     Active Substance: CHOLECALCIFEROL
     Dosage: 1 UNK
     Route: 048
     Dates: start: 2014
  15. VITAMIN C [Concomitant]
     Active Substance: ASCORBIC ACID
     Dosage: 1 UNK
     Route: 048
     Dates: start: 2014

REACTIONS (1)
  - Respiratory failure [Fatal]

NARRATIVE: CASE EVENT DATE: 20210609
